FAERS Safety Report 5228259-1 (Version None)
Quarter: 2007Q1

REPORT INFORMATION
  Report Type: 
  Country: None (occurrence: None)
  Receive Date: 20070205
  Receipt Date: 20070124
  Transmission Date: 20070707
  Serious: Yes (Death)
  Sender: FDA-Public Use
  Company Number: DE-ELI_LILLY_AND_COMPANY-DE200701005835

PATIENT
  Age: 43 Year
  Sex: Male

DRUGS (1)
  1. ZYPREXA [Suspect]
     Indication: SCHIZOAFFECTIVE DISORDER
     Dosage: 20 MG, DAILY (1/D)
     Route: 048

REACTIONS (2)
  - OEDEMA PERIPHERAL [None]
  - PULMONARY SARCOIDOSIS [None]
